FAERS Safety Report 5244398-3 (Version None)
Quarter: 2007Q1

REPORT INFORMATION
  Report Type: 
  Country: None (occurrence: None)
  Receive Date: 20070222
  Receipt Date: 20070214
  Transmission Date: 20070707
  Serious: Yes (Other)
  Sender: FDA-Public Use
  Company Number: 2007SE00429

PATIENT
  Age: 25424 Day
  Sex: Male
  Weight: 110 kg

DRUGS (7)
  1. ATACAND [Suspect]
     Indication: HYPERTENSION
     Route: 048
     Dates: start: 20010327
  2. CENTYL WITH POTASSIUMCHLORID [Concomitant]
  3. FELODIPINE [Concomitant]
  4. METFORMIN HCL [Concomitant]
  5. GABAPENTIN [Concomitant]
  6. OMNIC [Concomitant]
  7. SIMVASTATIN [Concomitant]

REACTIONS (1)
  - PROSTATE CANCER [None]
